FAERS Safety Report 8358790-1 (Version None)
Quarter: 2012Q2

REPORT INFORMATION
  Report Type: 
  Country: None (occurrence: None)
  Receive Date: 20120514
  Receipt Date: 20120502
  Transmission Date: 20120825
  Serious: Yes (Other)
  Sender: FDA-Public Use
  Company Number: US-ELI_LILLY_AND_COMPANY-US201104004061

PATIENT
  Sex: Female

DRUGS (11)
  1. POTASSIUM CHLORIDE [Concomitant]
  2. AZITHROMYCIN [Concomitant]
     Indication: INFECTION PROPHYLAXIS
  3. CALCIUM [Concomitant]
     Dosage: 1200 MG, UNK
  4. FORTEO [Suspect]
     Indication: OSTEOPOROSIS
     Dosage: 20 UG, QD
     Dates: start: 20110221
  5. FORTEO [Suspect]
     Dosage: 20 UG, QD
  6. CALCIUM [Concomitant]
     Dosage: 1000 MG, UNK
  7. FORTEO [Suspect]
     Dosage: 20 UG, QD
  8. VITAMIN D [Concomitant]
  9. ASPIRIN [Concomitant]
  10. SYNTHROID [Concomitant]
     Dosage: UNK, OTHER
  11. MAXZIDE [Concomitant]
     Indication: BLOOD PRESSURE

REACTIONS (8)
  - HYPERSENSITIVITY [None]
  - BACK PAIN [None]
  - INJECTION SITE HAEMORRHAGE [None]
  - CARDIAC PACEMAKER INSERTION [None]
  - PARONYCHIA [None]
  - BLISTER [None]
  - INJECTION SITE HAEMATOMA [None]
  - INGROWING NAIL [None]
